FAERS Safety Report 13379596 (Version 1)
Quarter: 2017Q1

REPORT INFORMATION
  Report Type: Spontaneous
  Country: US (occurrence: US)
  Receive Date: 20170328
  Receipt Date: 20170328
  Transmission Date: 20170429
  Serious: Yes (Other)
  Sender: FDA-Public Use
  Company Number: US-ELI_LILLY_AND_COMPANY-US201703009446

PATIENT
  Age: 70 Year
  Sex: Female

DRUGS (4)
  1. LARTRUVO [Suspect]
     Active Substance: OLARATUMAB
     Indication: LEIOMYOSARCOMA
  2. APO DEXAMETHASONE [Concomitant]
     Dosage: 20 MG, UNK
  3. BENADRYL [Concomitant]
     Active Substance: DIPHENHYDRAMINE HYDROCHLORIDE
     Dosage: 50 MG, UNK
  4. FAMOTIDIN [Concomitant]
     Dosage: 20 MG, UNK

REACTIONS (1)
  - Anaphylactic reaction [Unknown]
